FAERS Safety Report 22982306 (Version 3)
Quarter: 2024Q2

REPORT INFORMATION
  Report Type: Other
  Country: CA (occurrence: CA)
  Receive Date: 20230926
  Receipt Date: 20240605
  Transmission Date: 20240715
  Serious: No
  Sender: FDA-Public Use
  Company Number: CA-TOLMAR, INC.-23CA043171

PATIENT
  Sex: Male

DRUGS (5)
  1. ELIGARD [Suspect]
     Active Substance: LEUPROLIDE ACETATE
     Indication: Prostate cancer
     Dosage: 22.5 MILLIGRAM, Q 3 MONTH
     Route: 058
     Dates: start: 20230612
  2. ELIGARD [Suspect]
     Active Substance: LEUPROLIDE ACETATE
     Dosage: 22.5 MILLIGRAM, Q 3 MONTH
     Route: 058
     Dates: start: 20230906
  3. ELIGARD [Suspect]
     Active Substance: LEUPROLIDE ACETATE
     Dosage: 22.5 MILLIGRAM, Q 3 MONTH
     Route: 058
     Dates: start: 20240220
  4. ELIGARD [Suspect]
     Active Substance: LEUPROLIDE ACETATE
     Dosage: 22.5 MILLIGRAM, Q 3 MONTH
     Route: 058
     Dates: start: 20240514
  5. ELIGARD [Suspect]
     Active Substance: LEUPROLIDE ACETATE
     Indication: Prostate cancer
     Dosage: UNK

REACTIONS (5)
  - Abdominal distension [Unknown]
  - Hot flush [Not Recovered/Not Resolved]
  - Fatigue [Not Recovered/Not Resolved]
  - Nocturia [Unknown]
  - Weight increased [Unknown]
